FAERS Safety Report 23895508 (Version 1)
Quarter: 2024Q2

REPORT INFORMATION
  Report Type: Spontaneous
  Country: NL (occurrence: NL)
  Receive Date: 20240524
  Receipt Date: 20240524
  Transmission Date: 20240717
  Serious: Yes (Other)
  Sender: FDA-Public Use
  Company Number: NL-SUN PHARMACEUTICAL INDUSTRIES LTD-2024RR-447813

PATIENT
  Age: 67 Year
  Sex: Female
  Weight: 55 kg

DRUGS (4)
  1. ESOMEPRAZOLE [Suspect]
     Active Substance: ESOMEPRAZOLE
     Indication: Gastritis bacterial
     Dosage: 20 MILLIGRAM, BID
     Route: 065
     Dates: start: 20231230
  2. ESOMEPRAZOLE [Suspect]
     Active Substance: ESOMEPRAZOLE
     Dosage: 20 MILLIGRAM, DAILY
     Route: 065
  3. CLARITHROMYCIN [Suspect]
     Active Substance: CLARITHROMYCIN
     Indication: Gastritis bacterial
     Dosage: 1000 MILLIGRAM, DAILY
     Route: 065
     Dates: start: 20231230
  4. AMOXICILLIN [Suspect]
     Active Substance: AMOXICILLIN
     Indication: Gastritis bacterial
     Dosage: 1000 MILLIGRAM, BID
     Route: 065
     Dates: start: 20231230

REACTIONS (2)
  - Cutaneous vasculitis [Recovering/Resolving]
  - Diarrhoea [Recovering/Resolving]
